FAERS Safety Report 8794814 (Version 3)
Quarter: 2015Q2

REPORT INFORMATION
  Report Type: Report from Study
  Country: US (occurrence: US)
  Receive Date: 20120917
  Receipt Date: 20150410
  Transmission Date: 20150821
  Serious: Yes (Death, Other)
  Sender: FDA-Public Use
  Company Number: US-ROCHE-1127920

PATIENT
  Sex: Female

DRUGS (35)
  1. AVASTIN [Suspect]
     Active Substance: BEVACIZUMAB
     Route: 042
  2. TOPOTECAN [Concomitant]
     Active Substance: TOPOTECAN\TOPOTECAN HYDROCHLORIDE
  3. TAXOTERE [Concomitant]
     Active Substance: DOCETAXEL
  4. ZYRTEC [Concomitant]
     Active Substance: CETIRIZINE HYDROCHLORIDE
     Route: 048
  5. ATARAX [Concomitant]
     Active Substance: HYDROXYZINE\HYDROXYZINE HYDROCHLORIDE
  6. MILK OF MAGNESIA [Concomitant]
     Active Substance: MAGNESIUM HYDROXIDE
  7. CIMETIDINE [Concomitant]
     Active Substance: CIMETIDINE
     Route: 042
  8. ETOPOSIDE. [Concomitant]
     Active Substance: ETOPOSIDE
  9. MIRALAX [Concomitant]
     Active Substance: POLYETHYLENE GLYCOL 3350
  10. PEGFILGRASTIM [Concomitant]
     Active Substance: PEGFILGRASTIM
     Route: 058
  11. SENOKOT [Concomitant]
     Active Substance: SENNOSIDES
     Route: 065
  12. ATIVAN [Concomitant]
     Active Substance: LORAZEPAM
     Route: 060
  13. TYLENOL [Concomitant]
     Active Substance: ACETAMINOPHEN
  14. AVASTIN [Suspect]
     Active Substance: BEVACIZUMAB
     Route: 042
  15. AVASTIN [Suspect]
     Active Substance: BEVACIZUMAB
     Route: 042
  16. KYTRIL [Concomitant]
     Active Substance: GRANISETRON HYDROCHLORIDE
     Route: 042
  17. MAGNESIUM CITRATE. [Concomitant]
     Active Substance: MAGNESIUM CITRATE
  18. CATHFLO ACTIVASE [Concomitant]
     Active Substance: ALTEPLASE
     Route: 065
  19. ATIVAN [Concomitant]
     Active Substance: LORAZEPAM
     Route: 060
  20. DECADRON [Concomitant]
     Active Substance: DEXAMETHASONE
     Route: 042
  21. BENADRYL [Concomitant]
     Active Substance: DIPHENHYDRAMINE HYDROCHLORIDE
     Route: 042
  22. ARANESP [Concomitant]
     Active Substance: DARBEPOETIN ALFA
     Route: 058
  23. NEUPOGEN [Concomitant]
     Active Substance: FILGRASTIM
     Route: 058
  24. DOXIL [Concomitant]
     Active Substance: DOXORUBICIN HYDROCHLORIDE
     Route: 042
  25. SPIRONOLACTONE. [Concomitant]
     Active Substance: SPIRONOLACTONE
     Route: 065
  26. COMPAZINE [Concomitant]
     Active Substance: PROCHLORPERAZINE MALEATE
  27. ANZEMET [Concomitant]
     Active Substance: DOLASETRON MESYLATE
     Route: 042
  28. ALOXI [Concomitant]
     Active Substance: PALONOSETRON HYDROCHLORIDE
     Route: 042
  29. CARBOPLATIN. [Concomitant]
     Active Substance: CARBOPLATIN
     Route: 042
  30. TAXOL [Concomitant]
     Active Substance: PACLITAXEL
     Route: 042
  31. AVASTIN [Suspect]
     Active Substance: BEVACIZUMAB
     Indication: OVARIAN CANCER
     Route: 042
     Dates: start: 20070328, end: 20071003
  32. AVASTIN [Suspect]
     Active Substance: BEVACIZUMAB
     Route: 042
  33. GEMCITABINE [Concomitant]
     Active Substance: GEMCITABINE\GEMCITABINE HYDROCHLORIDE
  34. ZYRTEC [Concomitant]
     Active Substance: CETIRIZINE HYDROCHLORIDE
     Route: 048
  35. SENOKOT [Concomitant]
     Active Substance: SENNOSIDES
     Route: 065

REACTIONS (22)
  - Pancytopenia [Unknown]
  - Chills [Unknown]
  - Abdominal tenderness [Unknown]
  - Myalgia [Unknown]
  - Rhinorrhoea [Unknown]
  - Ascites [Unknown]
  - Fatigue [Unknown]
  - Constipation [Recovered/Resolved]
  - Disease progression [Unknown]
  - Arthritis [Unknown]
  - Neutropenia [Unknown]
  - Nausea [Unknown]
  - Sinus operation [Unknown]
  - Abdominal distension [Unknown]
  - Arthralgia [Unknown]
  - Pain [Unknown]
  - Oedema peripheral [Unknown]
  - Pyrexia [Unknown]
  - Asthenia [Unknown]
  - Abdominal pain [Unknown]
  - Death [Fatal]
  - Cough [Unknown]
